FAERS Safety Report 23802317 (Version 4)
Quarter: 2024Q3

REPORT INFORMATION
  Report Type: Spontaneous
  Country: DE (occurrence: DE)
  Receive Date: 20240501
  Receipt Date: 20240719
  Transmission Date: 20241017
  Serious: Yes (Other)
  Sender: ABBVIE
  Company Number: DE-EMBRYOTOX-202308822

PATIENT
  Age: 1 Day
  Sex: Male
  Weight: 2.7 kg

DRUGS (3)
  1. HUMIRA [Suspect]
     Active Substance: ADALIMUMAB
     Indication: Maternal exposure timing unspecified
     Dosage: 0. - 40.6. GESTATIONAL WEEK,  GESTATION EXPOSURE 1 TRIMESTERS
     Route: 064
  2. FOLSAEURE CT [Concomitant]
     Indication: Prophylaxis of neural tube defect
     Dosage: 5 [MG/D ], 0. - 40.6. GESTATIONAL WEEK, GESTATION EXPOSURE 1ST TRIMESTER
     Dates: start: 20230128, end: 20231110
  3. PREDNISOLONE [Suspect]
     Active Substance: PREDNISOLONE
     Indication: Maternal exposure timing unspecified
     Dosage: 32.5. - 38.5. GESTATIONAL WEEK, GESTATION EXPOSURE 3RD TRIMESTER
     Route: 064

REACTIONS (2)
  - Small for dates baby [Recovering/Resolving]
  - Foetal exposure during pregnancy [Unknown]

NARRATIVE: CASE EVENT DATE: 20231101
